FAERS Safety Report 8113889-X (Version None)
Quarter: 2012Q1

REPORT INFORMATION
  Report Type: 
  Country: None (occurrence: None)
  Receive Date: 20120203
  Receipt Date: 20120125
  Transmission Date: 20120608
  Serious: Yes (Death)
  Sender: FDA-Public Use
  Company Number: SE-ROCHE-1016440

PATIENT
  Sex: Female

DRUGS (3)
  1. OXALIPLATIN [Suspect]
     Indication: GASTRIC CANCER
     Dosage: CUMULATIVE DOSE: 688 MG
     Route: 042
     Dates: start: 20110805, end: 20110916
  2. EPIRUBICIN HYDROCHLORIDE [Suspect]
     Indication: GASTRIC CANCER
     Dosage: CUMULATIVE DOSE: 264 MG
     Route: 042
     Dates: start: 20110805, end: 20110916
  3. XELODA [Suspect]
     Indication: GASTRIC CANCER
     Dosage: DOSE: 6900 MG CUMULATIVE
     Dates: start: 20110805, end: 20111007

REACTIONS (1)
  - POST PROCEDURAL COMPLICATION [None]
